FAERS Safety Report 21951341 (Version 1)
Quarter: 2023Q1

REPORT INFORMATION
  Report Type: Spontaneous
  Country: US (occurrence: US)
  Receive Date: 20230203
  Receipt Date: 20230203
  Transmission Date: 20230418
  Serious: No
  Sender: FDA-Public Use
  Company Number: US-SA-SAC20230202001214

PATIENT

DRUGS (2)
  1. DUPILUMAB [Suspect]
     Active Substance: DUPILUMAB
     Dosage: UNK
     Route: 065
  2. BEBTELOVIMAB [Suspect]
     Active Substance: BEBTELOVIMAB
     Dosage: UNK

REACTIONS (2)
  - Bronchospasm [Unknown]
  - Infection [Unknown]
